FAERS Safety Report 16910202 (Version 1)
Quarter: 2019Q4

REPORT INFORMATION
  Report Type: Spontaneous
  Country: CN (occurrence: CN)
  Receive Date: 20191011
  Receipt Date: 20191011
  Transmission Date: 20200122
  Serious: No
  Sender: FDA-Public Use
  Company Number: CN-B.BRAUN MEDICAL INC.-2075576

PATIENT
  Age: 59 Year
  Sex: Male
  Weight: 85 kg

DRUGS (2)
  1. HESPAN [Suspect]
     Active Substance: HETASTARCH\SODIUM CHLORIDE
     Indication: INTRAOPERATIVE CARE
     Route: 041
     Dates: start: 20190905, end: 20190905
  2. CEFOTIAM HYDROCHLORIDE [Concomitant]
     Active Substance: CEFOTIAM HYDROCHLORIDE
     Route: 041
     Dates: start: 20190905, end: 20190905

REACTIONS (3)
  - Hypotension [Recovering/Resolving]
  - Rash [Recovering/Resolving]
  - Heart rate increased [Recovering/Resolving]

NARRATIVE: CASE EVENT DATE: 20190905
